FAERS Safety Report 10649767 (Version 2)
Quarter: 2015Q3

REPORT INFORMATION
  Report Type: Spontaneous
  Country: US (occurrence: US)
  Receive Date: 20141212
  Receipt Date: 20150805
  Transmission Date: 20151125
  Serious: Yes (Hospitalization)
  Sender: FDA-Public Use
  Company Number: US-BAYER-2014-183234

PATIENT
  Age: 21 Year
  Sex: Female
  Weight: 61.22 kg

DRUGS (2)
  1. MIRENA [Suspect]
     Active Substance: LEVONORGESTREL
     Indication: CONTRACEPTION
     Dosage: 20 MCG/24HR, CONT
     Route: 015
     Dates: start: 20080220, end: 20080828
  2. LONOX [Concomitant]
     Active Substance: ATROPINE SULFATE\DIPHENOXYLATE HYDROCHLORIDE
     Indication: IRRITABLE BOWEL SYNDROME
     Dosage: UNK
     Dates: start: 2004, end: 2014

REACTIONS (13)
  - Fallopian tube disorder [Recovered/Resolved]
  - Injury [Recovered/Resolved]
  - Dyspareunia [Not Recovered/Not Resolved]
  - Device issue [None]
  - Uterine perforation [Recovered/Resolved]
  - Menorrhagia [None]
  - Cyst [None]
  - Pelvic pain [Recovered/Resolved]
  - Movement disorder [None]
  - Abdominal pain lower [Not Recovered/Not Resolved]
  - Procedural pain [None]
  - Scar [None]
  - Ovarian disorder [Recovered/Resolved]

NARRATIVE: CASE EVENT DATE: 2008
